FAERS Safety Report 12810619 (Version 1)
Quarter: 2016Q4

REPORT INFORMATION
  Report Type: Spontaneous
  Country: CN (occurrence: CN)
  Receive Date: 20161005
  Receipt Date: 20161005
  Transmission Date: 20170207
  Serious: Yes (Hospitalization, Other)
  Sender: FDA-Public Use
  Company Number: CN-ABBVIE-16P-035-1744644-00

PATIENT
  Age: 15 Year
  Sex: Male

DRUGS (3)
  1. DEPAKINE CHRONO [Suspect]
     Active Substance: VALPROATE SODIUM
     Indication: EPILEPSY
     Dosage: EXTENDED RELEASE
     Route: 048
     Dates: start: 20150901, end: 20160630
  2. DEPAKINE CHRONO [Suspect]
     Active Substance: VALPROATE SODIUM
     Dosage: EXTENDED RELEASE
     Route: 048
     Dates: start: 20160702, end: 20160731
  3. DEPAKINE CHRONO [Suspect]
     Active Substance: VALPROATE SODIUM
     Dosage: EXTENDED RELEASE
     Route: 048
     Dates: start: 20160801

REACTIONS (4)
  - Drug dose omission [Unknown]
  - Epilepsy [Recovered/Resolved]
  - Abasia [Unknown]
  - Tremor [Unknown]

NARRATIVE: CASE EVENT DATE: 20160702
